FAERS Safety Report 4603594-6 (Version None)
Quarter: 2005Q1

REPORT INFORMATION
  Report Type: 
  Country: None (occurrence: None)
  Receive Date: 20050308
  Receipt Date: 20050221
  Transmission Date: 20050727
  Serious: Yes (Other)
  Sender: FDA-Public Use
  Company Number: GB-2005-002513

PATIENT
  Age: 22 Year
  Sex: Female

DRUGS (1)
  1. YASMIN [Suspect]
     Dates: start: 20040101

REACTIONS (4)
  - ABDOMINAL PAIN [None]
  - ACNE [None]
  - CONDITION AGGRAVATED [None]
  - POLYCYSTIC OVARIES [None]
